FAERS Safety Report 9361114 (Version 2)
Quarter: 2013Q3

REPORT INFORMATION
  Report Type: Spontaneous
  Country: US (occurrence: US)
  Receive Date: 20130621
  Receipt Date: 20130815
  Transmission Date: 20140515
  Serious: Yes (Death, Hospitalization)
  Sender: FDA-Public Use
  Company Number: US-INCYTE CORPORATION-2013IN001304

PATIENT
  Age: 76 Year
  Sex: Male
  Weight: 98 kg

DRUGS (6)
  1. JAKAFI [Suspect]
     Indication: MYELOFIBROSIS
     Dosage: 20 MG, BID
     Route: 048
     Dates: start: 201203, end: 201212
  2. ASPIRIN [Concomitant]
  3. ALLOPURINOL [Concomitant]
  4. OMEPRAZOLE [Concomitant]
  5. METOPROLOL [Concomitant]
  6. HYDREA [Concomitant]

REACTIONS (2)
  - Respiratory failure [Fatal]
  - Epistaxis [Not Recovered/Not Resolved]
